FAERS Safety Report 6539844-9 (Version None)
Quarter: 2010Q1

REPORT INFORMATION
  Report Type: 
  Country: None (occurrence: None)
  Receive Date: 20100115
  Receipt Date: 20100112
  Transmission Date: 20100710
  Serious: Yes (Life-Threatening)
  Sender: FDA-Public Use
  Company Number: FR-ROCHE-662217

PATIENT
  Sex: Female
  Weight: 55 kg

DRUGS (3)
  1. BEVACIZUMAB [Suspect]
     Route: 042
     Dates: start: 20080821
  2. CARBOPLATIN [Suspect]
     Route: 042
     Dates: start: 20080221
  3. PACLITAXEL [Suspect]
     Route: 042
     Dates: start: 20080221

REACTIONS (1)
  - WOUND COMPLICATION [None]
